FAERS Safety Report 4953467-4 (Version None)
Quarter: 2006Q1

REPORT INFORMATION
  Report Type: 
  Country: None (occurrence: None)
  Receive Date: 20060324
  Receipt Date: 20060321
  Transmission Date: 20060701
  Serious: Yes (Other)
  Sender: FDA-Public Use
  Company Number: GB-SANOFI-SYNTHELABO-A01200602230

PATIENT
  Age: 62 Year
  Sex: Female

DRUGS (5)
  1. PLAQUENIL [Suspect]
     Indication: RHEUMATOID ARTHRITIS
     Route: 048
  2. PLAQUENIL [Suspect]
     Route: 048
     Dates: start: 20020801
  3. BENDROFLUAZIDE [Concomitant]
     Route: 065
  4. OMEPRAZOLE [Concomitant]
     Dosage: UNK
     Route: 065
  5. PROPRANOLOL [Concomitant]
     Dosage: UNK
     Route: 065

REACTIONS (1)
  - MACULAR DEGENERATION [None]
